FAERS Safety Report 7150716-1 (Version None)
Quarter: 2010Q4

REPORT INFORMATION
  Report Type: 
  Country: None (occurrence: None)
  Receive Date: 20101210
  Receipt Date: 20101129
  Transmission Date: 20110411
  Serious: Yes (Hospitalization)
  Sender: FDA-Public Use
  Company Number: US-ELI_LILLY_AND_COMPANY-US201006002259

PATIENT
  Sex: Male

DRUGS (5)
  1. HUMALOG MIX 75/25 [Suspect]
     Indication: TYPE 2 DIABETES MELLITUS
     Dosage: 25 U, DAILY (1/D)
     Route: 065
     Dates: start: 20010101
  2. HUMALOG MIX 75/25 [Suspect]
     Dosage: UNK, AS NEEDED
     Route: 065
     Dates: start: 20010101
  3. HUMALOG MIX 75/25 [Suspect]
     Dosage: 25 U, DAILY (1/D)
     Route: 065
     Dates: start: 20010101
  4. HUMALOG MIX 75/25 [Suspect]
     Dosage: UNK, AS NEEDED
     Route: 065
     Dates: start: 20010101
  5. HUMALOG [Suspect]
     Indication: TYPE 2 DIABETES MELLITUS
     Dosage: UNK, AS NEEDED
     Route: 065

REACTIONS (10)
  - BLOOD GLUCOSE DECREASED [None]
  - BLOOD GLUCOSE INCREASED [None]
  - DEMENTIA [None]
  - DRUG INEFFECTIVE [None]
  - FEAR [None]
  - GLYCOSYLATED HAEMOGLOBIN INCREASED [None]
  - HYPERTENSION [None]
  - HYPOTENSION [None]
  - MALAISE [None]
  - TREMOR [None]
